FAERS Safety Report 24142701 (Version 1)
Quarter: 2024Q3

REPORT INFORMATION
  Report Type: Spontaneous
  Country: SA (occurrence: SA)
  Receive Date: 20240726
  Receipt Date: 20240726
  Transmission Date: 20241016
  Serious: Yes (Hospitalization)
  Sender: DR REDDYS
  Company Number: SA-Sudair Pharmaceutical Company-202400015

PATIENT
  Age: 84 Year
  Sex: Male

DRUGS (1)
  1. CAPECITABINE [Suspect]
     Active Substance: CAPECITABINE
     Indication: Colon cancer
     Dosage: DURATION OF DRUG ADMINISTRATION: 12 DAYS
     Route: 048
     Dates: start: 20240520, end: 20240531

REACTIONS (11)
  - Diarrhoea [Recovered/Resolved]
  - Rash [Recovered/Resolved]
  - Skin hyperpigmentation [Recovered/Resolved]
  - Metabolic acidosis [Recovered/Resolved]
  - Palmar-plantar erythrodysaesthesia syndrome [Recovered/Resolved]
  - Anal fissure [Recovered/Resolved]
  - Abdominal pain [Recovered/Resolved]
  - Pyrexia [Recovered/Resolved]
  - Haematochezia [Recovered/Resolved]
  - Hyponatraemia [Recovered/Resolved]
  - Stomatitis [Recovered/Resolved]

NARRATIVE: CASE EVENT DATE: 20240527
